FAERS Safety Report 6909159-5 (Version None)
Quarter: 2010Q3

REPORT INFORMATION
  Report Type: 
  Country: None (occurrence: None)
  Receive Date: 20100716
  Receipt Date: 20100518
  Transmission Date: 20110219
  Serious: Yes (Other)
  Sender: FDA-Public Use
  Company Number: 2010027835

PATIENT
  Age: 50 Year
  Sex: Female
  Weight: 107 kg

DRUGS (8)
  1. CELEBREX [Suspect]
     Indication: OSTEOARTHRITIS
     Dosage: 200 MG, 1X/DAY, ORAL
     Route: 048
     Dates: start: 20001101
  2. CELEBREX [Suspect]
     Dosage: 200 MG, ORAL
     Route: 048
     Dates: start: 20050301, end: 20100201
  3. OMEPRAZOLE [Concomitant]
  4. AVANDIA [Concomitant]
  5. GLUCOVANCE [Concomitant]
  6. ADVAIR DISKUS 100/50 [Concomitant]
  7. LEVOTHYROXINE SODIUM [Concomitant]
  8. LISINOPRIL [Concomitant]

REACTIONS (6)
  - ANAEMIA [None]
  - CRYING [None]
  - CYSTITIS INTERSTITIAL [None]
  - PAIN [None]
  - VITAMIN D DECREASED [None]
  - WEIGHT INCREASED [None]
